FAERS Safety Report 4854741-2 (Version None)
Quarter: 2005Q4

REPORT INFORMATION
  Report Type: 
  Country: None (occurrence: None)
  Receive Date: 20051215
  Receipt Date: 20051208
  Transmission Date: 20060501
  Serious: Yes (Hospitalization, Other)
  Sender: FDA-Public Use
  Company Number: US-GLAXOSMITHKLINE-A0585770A

PATIENT
  Sex: Female
  Weight: 3.2 kg

DRUGS (9)
  1. SUMATRIPTAN SUCCINATE [Suspect]
     Indication: MIGRAINE
     Dates: end: 20050301
  2. LAMOTRIGINE [Suspect]
     Indication: BIPOLAR DISORDER
     Dosage: 25MG PER DAY
     Dates: start: 20050214
  3. ZOLOFT [Concomitant]
  4. EFFEXOR [Concomitant]
  5. TRAZODONE HCL [Concomitant]
     Dates: end: 20050301
  6. XANAX [Concomitant]
     Dates: end: 20050303
  7. AMBIEN [Concomitant]
  8. CLONIDINE [Concomitant]
     Dosage: .1MG FOUR TIMES PER DAY
     Dates: end: 20050301
  9. DURAGESIC-100 [Concomitant]
     Dosage: 25MG ALTERNATE DAYS
     Dates: end: 20050304

REACTIONS (3)
  - DRUG EXPOSURE DURING PREGNANCY [None]
  - RESPIRATORY ARREST [None]
  - UMBILICAL CORD AROUND NECK [None]
